FAERS Safety Report 5930398-4 (Version None)
Quarter: 2008Q4

REPORT INFORMATION
  Report Type: 
  Country: None (occurrence: None)
  Receive Date: 20081022
  Receipt Date: 20081009
  Transmission Date: 20090506
  Serious: No
  Sender: FDA-Public Use
  Company Number: US024847

PATIENT
  Age: 2 Year
  Sex: Male
  Weight: 13.3 kg

DRUGS (1)
  1. ACTIQ [Suspect]
     Dosage: INGESTED A GOOD PART OT THE SUCKER ONCE BUCCAL
     Route: 002
     Dates: start: 20080403, end: 20080403

REACTIONS (1)
  - ACCIDENTAL DRUG INTAKE BY CHILD [None]
